FAERS Safety Report 18391814 (Version 1)
Quarter: 2020Q4

REPORT INFORMATION
  Report Type: Spontaneous
  Country: US (occurrence: US)
  Receive Date: 20201015
  Receipt Date: 20201015
  Transmission Date: 20210114
  Serious: Yes (Other)
  Sender: FDA-Public Use
  Company Number: None

PATIENT
  Age: 52 Year
  Sex: Female

DRUGS (23)
  1. ATENOLOL. [Suspect]
     Active Substance: ATENOLOL
  2. MIDODRINE, [Concomitant]
  3. VELPHORO [Concomitant]
     Active Substance: SUCROFERRIC OXYHYDROXIDE
  4. LORAZEPAM. [Suspect]
     Active Substance: LORAZEPAM
  5. CLOBESTASOL TOPICAL CREAM [Concomitant]
  6. ALBUTEROL NEB SOLN, [Concomitant]
  7. CYCLOBENZNPRINE, [Concomitant]
  8. MONTELUKAST, [Concomitant]
  9. IPRATROPTIUM INHL SOLN, [Concomitant]
  10. ALVESCO HFA [Concomitant]
  11. RENVELA, [Concomitant]
  12. AMITRIPTYLINE, [Concomitant]
  13. CINACALCET, [Concomitant]
  14. HYOSCYAMINE. [Concomitant]
     Active Substance: HYOSCYAMINE
  15. VENTOLIN HFA [Concomitant]
     Active Substance: ALBUTEROL SULFATE
  16. OPSUMIT [Suspect]
     Active Substance: MACITENTAN
     Indication: PULMONARY ARTERIAL HYPERTENSION
     Route: 048
     Dates: start: 201701
  17. OMEPRAZOLE. [Concomitant]
     Active Substance: OMEPRAZOLE
  18. OMEPRAZOLE, [Concomitant]
  19. EMLA, [Concomitant]
  20. LEVOTHYROXINE, [Concomitant]
  21. FLONASE [Concomitant]
     Active Substance: FLUTICASONE PROPIONATE
  22. ASTELIN, [Concomitant]
  23. NEPHRO VITE RX [Concomitant]
     Active Substance: ASCORBIC ACID\BIOTIN\CALCIUM PANTOTHENATE\CYANOCOBALAMIN\FOLIC ACID\NIACINAMIDE\PYRIDOXINE HYDROCHLORIDE\RIBOFLAVIN\THIAMINE MONONITRATE

REACTIONS (2)
  - Drug ineffective [None]
  - Arthralgia [None]

NARRATIVE: CASE EVENT DATE: 20201008
